FAERS Safety Report 16452162 (Version 2)
Quarter: 2019Q3

REPORT INFORMATION
  Report Type: Spontaneous
  Country: BE (occurrence: BE)
  Receive Date: 20190619
  Receipt Date: 20190709
  Transmission Date: 20191004
  Serious: Yes (Other)
  Sender: FDA-Public Use
  Company Number: BE-ALSI-201900265

PATIENT
  Age: 82 Year
  Sex: Male

DRUGS (7)
  1. ASAFLOW (ACETYLSALICYLIC ACID) [Concomitant]
  2. PANTOMED (PANTOPRAZOLE) [Concomitant]
     Active Substance: PANTOPRAZOLE
  3. FINASTERIDE. [Concomitant]
     Active Substance: FINASTERIDE
  4. NITRIC OXIDE. [Concomitant]
     Active Substance: NITRIC OXIDE
  5. COVERAM [Concomitant]
     Active Substance: AMLODIPINE\PERINDOPRIL
  6. LIPITOR [Concomitant]
     Active Substance: ATORVASTATIN CALCIUM
  7. OXYGEN. [Suspect]
     Active Substance: OXYGEN
     Indication: PRODUCT USED FOR UNKNOWN INDICATION
     Route: 055

REACTIONS (3)
  - Underdose [Recovered/Resolved]
  - Oxygen saturation decreased [Recovered/Resolved]
  - Overdose [Recovered/Resolved]
